FAERS Safety Report 5379588-2 (Version None)
Quarter: 2007Q3

REPORT INFORMATION
  Report Type: 
  Country: None (occurrence: None)
  Receive Date: 20070706
  Receipt Date: 20070628
  Transmission Date: 20080115
  Serious: Yes (Hospitalization)
  Sender: FDA-Public Use
  Company Number: US-ABBOTT-07P-163-0373211-00

PATIENT
  Sex: Female
  Weight: 79.45 kg

DRUGS (10)
  1. HUMIRA [Suspect]
     Indication: RHEUMATOID ARTHRITIS
     Dosage: PEN
     Dates: start: 20060801, end: 20070501
  2. HUMIRA [Suspect]
     Dosage: SYRINGE
     Route: 058
     Dates: start: 20030101, end: 20060801
  3. HUMIRA [Suspect]
     Dosage: SYRINGE
     Route: 058
     Dates: start: 20031201, end: 20040101
  4. HUMIRA [Suspect]
     Dosage: PEN
     Route: 058
     Dates: start: 20070601
  5. METHOTREXATE [Concomitant]
     Indication: RHEUMATOID ARTHRITIS
     Route: 048
  6. BP PILL [Concomitant]
     Indication: BLOOD PRESSURE
     Route: 048
  7. NAPROXEN [Concomitant]
     Indication: RHEUMATOID ARTHRITIS
     Route: 048
  8. FOLIC ACID [Concomitant]
     Indication: DRUG USE FOR UNKNOWN INDICATION
     Route: 048
  9. CALCIUM CHLORIDE [Concomitant]
     Indication: DRUG USE FOR UNKNOWN INDICATION
     Route: 048
  10. MVI WITH MINERALS [Concomitant]
     Indication: DRUG USE FOR UNKNOWN INDICATION
     Route: 048

REACTIONS (2)
  - DRUG INEFFECTIVE [None]
  - KNEE OPERATION [None]
